FAERS Safety Report 8717085 (Version 4)
Quarter: 2012Q4

REPORT INFORMATION
  Report Type: 
  Country: US (occurrence: US)
  Receive Date: 20120810
  Receipt Date: 20121129
  Transmission Date: 20130627
  Serious: Yes (Disabling, Other)
  Sender: FDA-Public Use
  Company Number: US-PFIZER INC-2012193673

PATIENT
  Age: 64 Year
  Sex: Female
  Weight: 90.7 kg

DRUGS (9)
  1. CELEBREX [Suspect]
     Indication: ARTHRITIS
     Dosage: 200 mg, 1x/day
     Route: 048
     Dates: start: 2007
  2. ZOLOFT [Suspect]
     Indication: DEPRESSION
     Dosage: UNK, 1x/day
     Route: 048
     Dates: start: 2002
  3. LYRICA [Suspect]
     Indication: FIBROMYALGIA
     Dosage: 75 mg, 2x/day
     Route: 048
     Dates: start: 2007
  4. LYRICA [Suspect]
     Dosage: 100 mg, 2x/day (morning and night time)
  5. HYDROCORTISONE [Concomitant]
     Indication: ADDISON^S DISEASE
     Dosage: UNK
  6. FLORINEF [Concomitant]
     Indication: ADDISON^S DISEASE
     Dosage: UNK
  7. LEVOTHYROXINE [Concomitant]
     Dosage: UNK
  8. ABILIFY [Concomitant]
     Indication: DEPRESSION
     Dosage: UNK
  9. BUSPAR [Concomitant]
     Indication: DEPRESSION
     Dosage: UNK

REACTIONS (5)
  - Scoliosis [Unknown]
  - Spinal column stenosis [Unknown]
  - Fibromyalgia [Unknown]
  - Arthritis [Unknown]
  - Neuralgia [Unknown]
